FAERS Safety Report 4389827-0 (Version None)
Quarter: 2004Q2

REPORT INFORMATION
  Report Type: 
  Country: None (occurrence: None)
  Receive Date: 20040630
  Receipt Date: 20040621
  Transmission Date: 20050107
  Serious: Yes (Other)
  Sender: FDA-Public Use
  Company Number: 2004-06-1460

PATIENT

DRUGS (1)
  1. AERIUS (DESLORATADINE)   ^LIKE CLARINEX^ [Suspect]
     Dosage: 5 MG QD ORAL
     Route: 048
     Dates: start: 20040620, end: 20040621

REACTIONS (1)
  - PERIORBITAL OEDEMA [None]
